FAERS Safety Report 9137033 (Version 1)
Quarter: 2013Q1

REPORT INFORMATION
  Report Type: Spontaneous
  Country: CA (occurrence: CA)
  Receive Date: 20130304
  Receipt Date: 20130304
  Transmission Date: 20140127
  Serious: Yes (Other)
  Sender: FDA-Public Use
  Company Number: CA-ASTRAZENECA-2013SE12407

PATIENT
  Sex: Female

DRUGS (4)
  1. FASLODEX [Suspect]
     Route: 030
  2. CAPRELSA [Suspect]
     Route: 048
  3. AROMASIN [Suspect]
     Route: 065
  4. LETROZOLE [Suspect]
     Route: 048

REACTIONS (3)
  - Breast cancer [Unknown]
  - Drug intolerance [Unknown]
  - Neoplasm [Unknown]
